FAERS Safety Report 8243217-0 (Version None)
Quarter: 2012Q1

REPORT INFORMATION
  Report Type: 
  Country: None (occurrence: None)
  Receive Date: 20120314
  Receipt Date: 20110428
  Transmission Date: 20120608
  Serious: Yes (Other)
  Sender: FDA-Public Use
  Company Number: PHHY2011US35751

PATIENT
  Age: 32 Year
  Sex: Male

DRUGS (2)
  1. FANAPT [Suspect]
     Dosage: 6 MG, BID
  2. CITALOPRAM HYDROBROMIDE [Concomitant]

REACTIONS (1)
  - ERECTILE DYSFUNCTION [None]
